FAERS Safety Report 13839772 (Version 1)
Quarter: 2017Q3

REPORT INFORMATION
  Report Type: Spontaneous
  Country: US (occurrence: US)
  Receive Date: 20170805
  Receipt Date: 20170805
  Transmission Date: 20171127
  Serious: Yes (Hospitalization)
  Sender: FDA-Public Use
  Company Number: None

PATIENT
  Age: 17 Year
  Sex: Male
  Weight: 68.6 kg

DRUGS (4)
  1. DEXAMETHASONE. [Suspect]
     Active Substance: DEXAMETHASONE
     Dates: end: 20170728
  2. METHOTREXATE. [Suspect]
     Active Substance: METHOTREXATE
     Dates: end: 20170717
  3. VINCRISTINE SULFATE. [Suspect]
     Active Substance: VINCRISTINE SULFATE
     Dates: end: 20170724
  4. MERCAPTOPURINE. [Suspect]
     Active Substance: MERCAPTOPURINE
     Dates: end: 20170723

REACTIONS (10)
  - Erythema [None]
  - Swelling [None]
  - Asthenia [None]
  - Soft tissue infection [None]
  - Pseudomonas infection [None]
  - Headache [None]
  - Cellulitis [None]
  - Sepsis [None]
  - Cough [None]
  - Bacteraemia [None]

NARRATIVE: CASE EVENT DATE: 20170725
